FAERS Safety Report 25096673 (Version 1)
Quarter: 2025Q1

REPORT INFORMATION
  Report Type: Spontaneous
  Country: FR (occurrence: FR)
  Receive Date: 20250319
  Receipt Date: 20250319
  Transmission Date: 20250409
  Serious: Yes (Other)
  Sender: NOVARTIS
  Company Number: FR-002147023-NVSC2025FR044232

PATIENT
  Age: 82 Year
  Sex: Female

DRUGS (2)
  1. EXJADE [Suspect]
     Active Substance: DEFERASIROX
     Indication: Myelodysplastic syndrome
     Route: 065
     Dates: start: 202212
  2. EXJADE [Suspect]
     Active Substance: DEFERASIROX
     Route: 065
     Dates: start: 202212

REACTIONS (5)
  - Cortical visual impairment [Unknown]
  - Psychomotor hyperactivity [Unknown]
  - Feeling jittery [Unknown]
  - Hypoacusis [Unknown]
  - Ageusia [Recovering/Resolving]

NARRATIVE: CASE EVENT DATE: 20221201
